FAERS Safety Report 9915466 (Version 2)
Quarter: 2014Q2

REPORT INFORMATION
  Report Type: Spontaneous
  Country: US (occurrence: US)
  Receive Date: 20140221
  Receipt Date: 20140408
  Transmission Date: 20141212
  Serious: Yes (Hospitalization)
  Sender: FDA-Public Use
  Company Number: US-BIOGENIDEC-2014BI015640

PATIENT
  Age: 51 Year
  Sex: Female

DRUGS (5)
  1. TECFIDERA [Suspect]
     Indication: MULTIPLE SCLEROSIS
     Route: 048
     Dates: start: 20140131
  2. FENTANYL [Concomitant]
  3. LORTAB [Concomitant]
  4. LYRICA [Concomitant]
  5. NEURONTIN [Concomitant]

REACTIONS (3)
  - Erythema [Not Recovered/Not Resolved]
  - Spinal fusion surgery [Recovered/Resolved]
  - Accident [Recovered/Resolved]
